FAERS Safety Report 5384754-6 (Version None)
Quarter: 2007Q3

REPORT INFORMATION
  Report Type: 
  Country: None (occurrence: None)
  Receive Date: 20070706
  Receipt Date: 20070605
  Transmission Date: 20080115
  Serious: No
  Sender: FDA-Public Use
  Company Number: PHEH2007US06922

PATIENT
  Age: 64 Year
  Sex: Male
  Weight: 93.4 kg

DRUGS (3)
  1. TEKTURNA [Suspect]
     Indication: HYPERTENSION
     Dosage: 150 MG, QD
     Dates: start: 20070502
  2. CLONIDINE [Suspect]
     Indication: HYPERTENSION
     Dosage: 0.1 MG, QD
     Dates: end: 20070501
  3. CLONIDINE [Suspect]
     Indication: HYPERTENSION
     Dosage: 0.1 MG, QD
     Dates: start: 20070502

REACTIONS (3)
  - BLOOD PRESSURE INCREASED [None]
  - HEART RATE INCREASED [None]
  - HOT FLUSH [None]
